FAERS Safety Report 9722909 (Version 1)
Quarter: 2013Q4

REPORT INFORMATION
  Report Type: Spontaneous
  Country: AU (occurrence: AU)
  Receive Date: 20131202
  Receipt Date: 20131202
  Transmission Date: 20140711
  Serious: Yes (Other)
  Sender: FDA-Public Use
  Company Number: PHHY2013AU139459

PATIENT
  Sex: Male

DRUGS (7)
  1. RITALIN [Suspect]
     Dosage: UNK UKN, UNK
  2. CLONIDINE HYDROCHLORIDE [Concomitant]
     Dosage: UNK UKN, UNK
  3. DEXAMFETAMINE SULPHATE [Concomitant]
     Dosage: UNK UKN, UNK
  4. MELATONIN [Concomitant]
     Dosage: UNK UKN, UNK
  5. RISPERIDONE [Concomitant]
     Dosage: UNK UKN, UNK
  6. CONCERTA [Concomitant]
     Dosage: UNK UKN, UNK
  7. RITALINA LA [Concomitant]
     Dosage: UNK UKN, UNK

REACTIONS (1)
  - Cardiac disorder [Unknown]
